FAERS Safety Report 12547823 (Version 1)
Quarter: 2016Q3

REPORT INFORMATION
  Report Type: Spontaneous
  Country: US (occurrence: None)
  Receive Date: 20160711
  Receipt Date: 20160711
  Transmission Date: 20161109
  Serious: Yes (Life-Threatening)
  Sender: FDA-Public Use
  Company Number: None

PATIENT
  Age: 62 Year
  Sex: Male
  Weight: 95 kg

DRUGS (28)
  1. FAMOTIDINE. [Concomitant]
     Active Substance: FAMOTIDINE
  2. OMEPRAZOLE. [Concomitant]
     Active Substance: OMEPRAZOLE
  3. SYMBICORT [Concomitant]
     Active Substance: BUDESONIDE\FORMOTEROL FUMARATE DIHYDRATE
  4. PHENERGAN [Concomitant]
     Active Substance: PROMETHAZINE HYDROCHLORIDE
  5. ALBUTEROL INHALER [Concomitant]
     Active Substance: ALBUTEROL
  6. HEPARIN [Concomitant]
     Active Substance: HEPARIN SODIUM
  7. METOCLOPRAMIDE. [Concomitant]
     Active Substance: METOCLOPRAMIDE
  8. METHADONE [Concomitant]
     Active Substance: METHADONE HYDROCHLORIDE
  9. LORAZEPAM. [Concomitant]
     Active Substance: LORAZEPAM
  10. MULTIVITAMIN [Concomitant]
     Active Substance: VITAMINS
  11. MORPHINE [Concomitant]
     Active Substance: MORPHINE
  12. LACTOBACILLUS [Concomitant]
     Active Substance: LACTOBACILLUS ACIDOPHILUS
  13. PROTONIX [Concomitant]
     Active Substance: PANTOPRAZOLE SODIUM
  14. PROPOFOL. [Concomitant]
     Active Substance: PROPOFOL
  15. ASPIRIN. [Concomitant]
     Active Substance: ASPIRIN
  16. NOREPINEPHRINE [Concomitant]
     Active Substance: NOREPINEPHRINE\NOREPINEPHRINE BITARTRATE
  17. D5NS [Concomitant]
  18. ZOSYN [Concomitant]
     Active Substance: PIPERACILLIN SODIUM\TAZOBACTAM SODIUM
  19. FENTANYL. [Concomitant]
     Active Substance: FENTANYL
  20. MIDAZOLAM [Concomitant]
     Active Substance: MIDAZOLAM\MIDAZOLAM HYDROCHLORIDE
  21. ZOFRAN [Concomitant]
     Active Substance: ONDANSETRON HYDROCHLORIDE
  22. POTASSIUM [Concomitant]
     Active Substance: POTASSIUM
  23. LANTUS [Suspect]
     Active Substance: INSULIN GLARGINE
     Indication: DIABETES MELLITUS
     Route: 058
  24. LYRICA [Concomitant]
     Active Substance: PREGABALIN
  25. ASA [Concomitant]
     Active Substance: ASPIRIN
  26. XANAX [Concomitant]
     Active Substance: ALPRAZOLAM
  27. APAP [Concomitant]
     Active Substance: ACETAMINOPHEN
  28. PREGABALIN. [Concomitant]
     Active Substance: PREGABALIN

REACTIONS (1)
  - Blood glucose increased [None]

NARRATIVE: CASE EVENT DATE: 20160418
